FAERS Safety Report 10692665 (Version 3)
Quarter: 2015Q1

REPORT INFORMATION
  Report Type: Spontaneous
  Country: DE (occurrence: DE)
  Receive Date: 20150106
  Receipt Date: 20150224
  Transmission Date: 20150720
  Serious: Yes (Hospitalization, Other)
  Sender: FDA-Public Use
  Company Number: DE-UCBSA-2014023255

PATIENT
  Age: 85 Year
  Sex: Female
  Weight: 80 kg

DRUGS (6)
  1. KEPPRA [Suspect]
     Active Substance: LEVETIRACETAM
     Indication: PRODUCT USED FOR UNKNOWN INDICATION
     Dosage: UNK
  2. OPIPRAMOL [Suspect]
     Active Substance: OPIPRAMOL
     Dosage: 50 MG
     Route: 048
  3. LEVETIRACETAM. [Suspect]
     Active Substance: LEVETIRACETAM
     Indication: OFF LABEL USE
  4. QUENSYL [Suspect]
     Active Substance: HYDROXYCHLOROQUINE
     Indication: PRODUCT USED FOR UNKNOWN INDICATION
     Dosage: 100 MG
     Route: 048
  5. LEVETIRACETAM. [Suspect]
     Active Substance: LEVETIRACETAM
     Indication: SENILE DEMENTIA
     Dosage: 250 MG
     Route: 048
  6. OPIPRAMOL [Suspect]
     Active Substance: OPIPRAMOL
     Indication: SENILE DEMENTIA
     Dosage: 200 MG
     Route: 048

REACTIONS (6)
  - Hypoglycaemia [Recovering/Resolving]
  - Off label use [Unknown]
  - Respiratory failure [Recovering/Resolving]
  - Disturbance in attention [Recovering/Resolving]
  - Hypotension [Recovering/Resolving]
  - Hypothermia [Recovering/Resolving]

NARRATIVE: CASE EVENT DATE: 20141028
